FAERS Safety Report 10388906 (Version 1)
Quarter: 2014Q1

REPORT INFORMATION
  Report Type: Spontaneous
  Country: US (occurrence: None)
  Receive Date: 20140306
  Receipt Date: 20140306
  Transmission Date: 20141002
  Serious: Yes (Other)
  Sender: FDA-Public Use
  Company Number: 163-21880-13115054

PATIENT
  Age: 72 Year
  Sex: Female
  Weight: 70.7 kg

DRUGS (9)
  1. REVLIMID ( LENALIDOMIDE) ( 25 MILLIGRAM, CAPSULES) [Suspect]
     Indication: PLASMA CELL MYELOMA
     Dosage: 21 IN 21 D, PO
     Route: 048
     Dates: start: 20130927, end: 201311
  2. VIDAZA(AZACITIDINE)(UNKNOWN) [Concomitant]
  3. DEXAMETHASONE(DEXAMETHASONE)(UNKNOWN) [Concomitant]
  4. SYNTHROID(LEVOTHYROXINE SODIUM)(UNKNOWN) [Concomitant]
  5. GABAPENTIN(GABAPENTIN) (UNKNOWN)? [Concomitant]
  6. COREG(CARVEDILOL)(UNKNOWN)? [Concomitant]
  7. ASA(ACETYLSALICYLIC ACID)(UNKNOWN)? [Concomitant]
  8. CYMBALTA(DULOXETINE HYDROCHLORIDE) (UNKNOWN) [Concomitant]
  9. ACYCLOVIR(ACICLOVIR)(UNKNOWN) [Concomitant]

REACTIONS (1)
  - Neutrophil count decreased [None]
